FAERS Safety Report 4914785-9 (Version None)
Quarter: 2006Q1

REPORT INFORMATION
  Report Type: 
  Country: None (occurrence: None)
  Receive Date: 20060113
  Receipt Date: 20051020
  Transmission Date: 20060701
  Serious: No
  Sender: FDA-Public Use
  Company Number: 2005SP003608

PATIENT
  Sex: Female

DRUGS (9)
  1. LUNESTA [Suspect]
     Dosage: 2 MG; UNKNOWN
     Route: 065
     Dates: start: 20051001, end: 20051001
  2. LORAZEPAM [Concomitant]
  3. TEMAZEPAM [Concomitant]
  4. SLIPPERY ELM [Concomitant]
  5. ENALAPRIL MALEATE [Concomitant]
  6. FOLIC ACID [Concomitant]
  7. MAGNESIUM [Concomitant]
  8. DARVOCET [Concomitant]
  9. HYOSCYAMINE [Concomitant]

REACTIONS (2)
  - DRUG INEFFECTIVE [None]
  - INSOMNIA [None]
